FAERS Safety Report 8220214-2 (Version None)
Quarter: 2012Q1

REPORT INFORMATION
  Report Type: 
  Country: None (occurrence: None)
  Receive Date: 20120320
  Receipt Date: 20120308
  Transmission Date: 20120608
  Serious: Yes (Disabling, Other)
  Sender: FDA-Public Use
  Company Number: US-BAYER-2012-024483

PATIENT
  Age: 43 Year
  Sex: Female
  Weight: 72.562 kg

DRUGS (8)
  1. PROCTOSOL HC [Concomitant]
     Dosage: 2.5 UNK, UNK
     Dates: start: 20090622
  2. YASMIN [Suspect]
     Dosage: UNK
     Route: 048
     Dates: start: 20080601, end: 20090801
  3. FLOVENT HFA [Concomitant]
     Dosage: 110 MCG
     Dates: start: 20090727
  4. FLONASE [Concomitant]
     Dosage: 50 MCG
     Dates: start: 20090827
  5. OXYCODONE AND ACETAMINOPHEN [Concomitant]
     Dosage: 5/325 MG TABLET
     Dates: start: 20090727
  6. ALBUTEROL SULFATE [Concomitant]
     Dosage: UNK
     Dates: start: 20090727
  7. YAZ [Suspect]
     Dosage: UNK
     Route: 048
     Dates: start: 20080601, end: 20090801
  8. DROSPIRENONE AND ETHINYL ESTRADIOL [Suspect]
     Dosage: UNK
     Route: 048
     Dates: start: 20080601, end: 20090801

REACTIONS (5)
  - PAIN [None]
  - DEFORMITY [None]
  - INJURY [None]
  - DEEP VEIN THROMBOSIS [None]
  - QUALITY OF LIFE DECREASED [None]
